FAERS Safety Report 8954704 (Version 1)
Quarter: 2012Q4

REPORT INFORMATION
  Report Type: 
  Country: US (occurrence: US)
  Receive Date: 20121207
  Receipt Date: 20121207
  Transmission Date: 20130627
  Serious: Yes (Death, Hospitalization)
  Sender: FDA-Public Use
  Company Number: US-GLAXOSMITHKLINE-A0775118A

PATIENT
  Sex: Male

DRUGS (1)
  1. AVANDIA [Suspect]
     Indication: DIABETES MELLITUS
     Route: 048
     Dates: start: 19990624, end: 2007

REACTIONS (7)
  - Pneumonia [Fatal]
  - Cardiac failure congestive [Unknown]
  - Respiratory failure [Unknown]
  - Pulmonary oedema [Unknown]
  - Fluid retention [Unknown]
  - Leg amputation [Unknown]
  - Depression [Unknown]
